FAERS Safety Report 9174561 (Version 1)
Quarter: 2013Q1

REPORT INFORMATION
  Report Type: Spontaneous
  Country: FR (occurrence: FR)
  Receive Date: 20130320
  Receipt Date: 20130320
  Transmission Date: 20140127
  Serious: Yes (Hospitalization, Other)
  Sender: FDA-Public Use
  Company Number: FR-PFIZER INC-2013085512

PATIENT
  Age: 65 Year
  Sex: Female

DRUGS (1)
  1. SUTENT [Suspect]
     Indication: RENAL CANCER
     Dosage: 50 MG, 1X/DAY, CYCLIC (4 WEEKS ON/2 WEEKS OFF)
     Route: 048
     Dates: start: 20130129, end: 20130222

REACTIONS (5)
  - Hepatocellular injury [Recovering/Resolving]
  - Adrenal insufficiency [Recovered/Resolved]
  - Loss of consciousness [Unknown]
  - Renal failure [Unknown]
  - Pyrexia [Unknown]
